FAERS Safety Report 26129962 (Version 1)
Quarter: 2025Q4

REPORT INFORMATION
  Report Type: Spontaneous
  Country: JP (occurrence: JP)
  Receive Date: 20251208
  Receipt Date: 20251208
  Transmission Date: 20260117
  Serious: Yes (Hospitalization)
  Sender: ROCHE
  Company Number: JP-CHUGAI-2025038937

PATIENT
  Age: 57 Year
  Sex: Male

DRUGS (5)
  1. TECENTRIQ [Suspect]
     Active Substance: ATEZOLIZUMAB
     Indication: Hepatocellular carcinoma
     Dosage: UNK
     Route: 042
  2. TECENTRIQ [Suspect]
     Active Substance: ATEZOLIZUMAB
     Dosage: UNK
     Route: 042
     Dates: start: 202402
  3. AVASTIN [Suspect]
     Active Substance: BEVACIZUMAB
     Indication: Hepatocellular carcinoma
     Dosage: UNK
     Route: 042
  4. AVASTIN [Suspect]
     Active Substance: BEVACIZUMAB
     Dosage: UNK
     Route: 042
     Dates: start: 202402
  5. ENTECAVIR [Concomitant]
     Active Substance: ENTECAVIR
     Dosage: UNK
     Route: 065
     Dates: start: 2014

REACTIONS (4)
  - Haemobilia [Recovering/Resolving]
  - Cholangitis acute [Unknown]
  - Cholecystitis [Recovering/Resolving]
  - Off label use [Unknown]
